FAERS Safety Report 8896377 (Version 2)
Quarter: 2012Q4

REPORT INFORMATION
  Report Type: 
  Country: US (occurrence: None)
  Receive Date: 20121109
  Receipt Date: 20121214
  Transmission Date: 20130627
  Serious: Yes (Death, Life-Threatening, Hospitalization, Other)
  Sender: FDA-Public Use
  Company Number: None

PATIENT
  Age: 62 Year
  Sex: Male
  Weight: 81.65 kg

DRUGS (7)
  1. STEROID (NOS) [Suspect]
     Indication: ANESTHESIA
     Dosage: Hemodialysis
August - October
     Dates: start: 20120727, end: 20120804
  2. STEROID (NOS) [Suspect]
     Indication: SEDATIVE THERAPY
     Dosage: Hemodialysis
August - October
     Dates: start: 20120727, end: 20120804
  3. STEROID (NOS) [Suspect]
     Indication: EYE OPERATION
     Dosage: Hemodialysis
August - October
     Dates: start: 20120727, end: 20120804
  4. STEROID (NOS) [Suspect]
     Indication: ANESTHESIA
     Dosage: IM
     Route: 030
     Dates: start: 20120930, end: 20121022
  5. STEROID (NOS) [Suspect]
     Indication: SEDATIVE THERAPY
     Dosage: IM
     Route: 030
     Dates: start: 20120930, end: 20121022
  6. STEROID (NOS) [Suspect]
     Indication: EYE OPERATION
     Dosage: IM
     Route: 030
     Dates: start: 20120930, end: 20121022
  7. KETOROLAC INJECTION [Suspect]

REACTIONS (16)
  - Product contamination [None]
  - Sinusitis [None]
  - Sudden death [None]
  - Sepsis [None]
  - Dehydration [None]
  - Septic shock [None]
  - Cardiac arrest [None]
  - Aspiration [None]
  - Pyrexia [None]
  - Headache [None]
  - Swelling [None]
  - Photophobia [None]
  - Erythema [None]
  - Respiratory failure [None]
  - Myasthenia gravis [None]
  - Staphylococcal infection [None]
